FAERS Safety Report 8252976-2 (Version None)
Quarter: 2012Q2

REPORT INFORMATION
  Report Type: 
  Country: None (occurrence: None)
  Receive Date: 20120402
  Receipt Date: 20120327
  Transmission Date: 20120825
  Serious: Yes (Hospitalization)
  Sender: FDA-Public Use
  Company Number: JP-MERCK-1203USA01283

PATIENT
  Age: 80 Year
  Sex: Female

DRUGS (3)
  1. LOXOPROFEN SODIUM [Concomitant]
     Route: 048
  2. FOSAMAX [Suspect]
     Indication: OSTEOPOROSIS
     Route: 048
  3. FOSAMAX [Suspect]
     Indication: SPINAL COMPRESSION FRACTURE
     Route: 048

REACTIONS (3)
  - OESOPHAGEAL ULCER [None]
  - HYPOVOLAEMIC SHOCK [None]
  - GASTRIC ULCER [None]
